FAERS Safety Report 8964367 (Version 1)
Quarter: 2012Q4

REPORT INFORMATION
  Report Type: 
  Country: US (occurrence: US)
  Receive Date: 20121214
  Receipt Date: 20121214
  Transmission Date: 20130627
  Serious: No
  Sender: FDA-Public Use
  Company Number: US-GLAXOSMITHKLINE-A0976986A

PATIENT
  Age: 46 Year
  Sex: Male

DRUGS (6)
  1. AVODART [Suspect]
     Indication: PROSTATOMEGALY
     Dosage: .5MG Weekly
     Route: 048
     Dates: start: 201103
  2. HERBAL MEDICATION [Concomitant]
  3. VITAMIN D [Concomitant]
  4. LOSARTAN [Concomitant]
  5. MULTIVITAMIN [Concomitant]
  6. PROVENTIL [Concomitant]

REACTIONS (1)
  - Breast enlargement [Not Recovered/Not Resolved]
